FAERS Safety Report 6899844-6 (Version None)
Quarter: 2010Q3

REPORT INFORMATION
  Report Type: 
  Country: None (occurrence: None)
  Receive Date: 20100803
  Receipt Date: 20100721
  Transmission Date: 20110219
  Serious: Yes (Hospitalization)
  Sender: FDA-Public Use
  Company Number: US-BAYER-201022731NA

PATIENT
  Age: 62 Year
  Sex: Male

DRUGS (1)
  1. NEXAVAR [Suspect]
     Indication: HAEMANGIOPERICYTOMA
     Dosage: TOTAL DAILY DOSE: 800 MG  UNIT DOSE: 200 MG
     Route: 048
     Dates: start: 20100511, end: 20100609

REACTIONS (8)
  - ASTHENIA [None]
  - DECREASED APPETITE [None]
  - DYSPEPSIA [None]
  - GASTROINTESTINAL STOMA COMPLICATION [None]
  - GLOSSODYNIA [None]
  - HYPERAESTHESIA [None]
  - ONYCHOCLASIS [None]
  - PAIN IN EXTREMITY [None]
